FAERS Safety Report 10689365 (Version 1)
Quarter: 2015Q1

REPORT INFORMATION
  Report Type: Spontaneous
  Country: US (occurrence: None)
  Receive Date: 20150102
  Receipt Date: 20150102
  Transmission Date: 20150720
  Serious: Yes (Hospitalization)
  Sender: FDA-Public Use
  Company Number: None

PATIENT
  Age: 61 Year
  Sex: Male

DRUGS (1)
  1. MEPERIDINE [Suspect]
     Active Substance: MEPERIDINE
     Indication: PAIN
     Route: 042
     Dates: start: 20141021, end: 20141021

REACTIONS (2)
  - Chest pain [None]
  - Cardio-respiratory arrest [None]

NARRATIVE: CASE EVENT DATE: 20141021
